FAERS Safety Report 23276265 (Version 3)
Quarter: 2024Q1

REPORT INFORMATION
  Report Type: Spontaneous
  Country: US (occurrence: US)
  Receive Date: 20231208
  Receipt Date: 20240213
  Transmission Date: 20240410
  Serious: No
  Sender: FDA-Public Use
  Company Number: US-Blueprint Medicines Corporation-1773

PATIENT
  Sex: Female

DRUGS (2)
  1. AYVAKIT [Suspect]
     Active Substance: AVAPRITINIB
     Indication: Systemic mastocytosis
     Route: 065
     Dates: start: 20231110
  2. AYVAKIT [Suspect]
     Active Substance: AVAPRITINIB
     Indication: Indolent systemic mastocytosis
     Route: 048
     Dates: start: 20231106

REACTIONS (7)
  - Fatigue [Unknown]
  - Pain [Unknown]
  - Vomiting [Unknown]
  - Swelling face [Unknown]
  - Blood cholesterol [Unknown]
  - Adverse drug reaction [Unknown]
  - Intentional dose omission [Unknown]
